FAERS Safety Report 4770608-2 (Version None)
Quarter: 2005Q3

REPORT INFORMATION
  Report Type: 
  Country: None (occurrence: None)
  Receive Date: 20050915
  Receipt Date: 20050907
  Transmission Date: 20060218
  Serious: Yes (Death)
  Sender: FDA-Public Use
  Company Number: US-JNJFOC-20050901993

PATIENT
  Age: 23 Year
  Sex: Male

DRUGS (3)
  1. TRAMADOL [Suspect]
     Indication: DRUG USE FOR UNKNOWN INDICATION
  2. MIRTAZAPINE [Suspect]
     Indication: DRUG USE FOR UNKNOWN INDICATION
  3. CLONAZEPAM [Suspect]
     Indication: DRUG USE FOR UNKNOWN INDICATION

REACTIONS (11)
  - BRAIN HERNIATION [None]
  - BRAIN STEM HAEMORRHAGE [None]
  - COMPLETED SUICIDE [None]
  - DIALYSIS [None]
  - HYPERTHERMIA [None]
  - INTENTIONAL MISUSE [None]
  - LOSS OF CONSCIOUSNESS [None]
  - METABOLIC ACIDOSIS [None]
  - ORGAN FAILURE [None]
  - OVERDOSE [None]
  - PULSE ABSENT [None]
